FAERS Safety Report 19797252 (Version 1)
Quarter: 2021Q3

REPORT INFORMATION
  Report Type: Spontaneous
  Country: US (occurrence: US)
  Receive Date: 20210901
  Receipt Date: 20210901
  Transmission Date: 20211014
  Serious: No
  Sender: FDA-Public Use
  Company Number: None

PATIENT
  Age: 29 Year
  Sex: Male

DRUGS (1)
  1. TALTZ [Suspect]
     Active Substance: IXEKIZUMAB
     Indication: PSORIASIS
     Route: 058
     Dates: start: 202105

REACTIONS (5)
  - Device leakage [None]
  - Product selection error [None]
  - Device malfunction [None]
  - Product dose omission issue [None]
  - Product dispensing error [None]

NARRATIVE: CASE EVENT DATE: 20210526
